FAERS Safety Report 10401827 (Version 1)
Quarter: 2014Q3

REPORT INFORMATION
  Report Type: Spontaneous
  Country: US (occurrence: US)
  Receive Date: 20140822
  Receipt Date: 20140822
  Transmission Date: 20150326
  Serious: Yes (Other)
  Sender: FDA-Public Use
  Company Number: US-AMGEN INC.-USASP2014063598

PATIENT
  Age: 44 Year
  Sex: Female

DRUGS (1)
  1. ENBREL [Suspect]
     Active Substance: ETANERCEPT
     Indication: RHEUMATOID ARTHRITIS
     Dosage: 50 MG, QWK
     Route: 058
     Dates: start: 2004, end: 201406

REACTIONS (3)
  - Pharyngitis streptococcal [Recovered/Resolved]
  - Clostridium difficile infection [Recovered/Resolved]
  - Joint destruction [Recovering/Resolving]

NARRATIVE: CASE EVENT DATE: 201405
